FAERS Safety Report 7645085-4 (Version None)
Quarter: 2011Q3

REPORT INFORMATION
  Report Type: 
  Country: None (occurrence: None)
  Receive Date: 20110729
  Receipt Date: 20110721
  Transmission Date: 20111222
  Serious: Yes (Disabling, Other)
  Sender: FDA-Public Use
  Company Number: PHEH2009US16962

PATIENT
  Sex: Female

DRUGS (16)
  1. ZOMETA [Suspect]
  2. NAPROXEN [Concomitant]
     Route: 048
  3. AMLODIPINE BESYLATE [Concomitant]
     Dosage: 5 MG, DAILY
  4. FENTANYL [Concomitant]
  5. METHYLPREDNISOLONE [Concomitant]
  6. HYDROCODONE BITARTRATE [Concomitant]
     Route: 048
  7. CHLORHEXIDINE GLUCONATE [Concomitant]
  8. ASPIRIN [Concomitant]
     Dosage: 81 MG, PER DAY
  9. IBUPROFEN [Concomitant]
  10. AMOX-CLAV [Concomitant]
     Route: 048
  11. PENICILLIN VK [Concomitant]
     Route: 048
  12. ALKERAN [Concomitant]
     Dosage: 6 MG, DAILY FOR 7 DAYS EVERY 6 WEEKS
  13. OXYCODONE HCL [Concomitant]
     Route: 048
  14. TRAMADOL HCL [Concomitant]
     Route: 048
  15. THALIDOMIDE [Concomitant]
     Dosage: 50 MG, DAILY
  16. SENNACOTS [Concomitant]

REACTIONS (18)
  - ANHEDONIA [None]
  - MONOCLONAL GAMMOPATHY [None]
  - MULTIPLE MYELOMA [None]
  - OSTEONECROSIS OF JAW [None]
  - INJURY [None]
  - BONE LESION [None]
  - HYPOAESTHESIA [None]
  - PAIN [None]
  - SLEEP APNOEA SYNDROME [None]
  - ANXIETY [None]
  - RENAL DISORDER [None]
  - HYPERTENSION [None]
  - FATIGUE [None]
  - EXPOSED BONE IN JAW [None]
  - PRIMARY SEQUESTRUM [None]
  - PAIN IN JAW [None]
  - ANAEMIA [None]
  - NIGHT SWEATS [None]
